FAERS Safety Report 8612665 (Version 3)
Quarter: 2012Q4

REPORT INFORMATION
  Report Type: 
  Country: JP (occurrence: JP)
  Receive Date: 20120613
  Receipt Date: 20120830
  Transmission Date: 20130627
  Serious: Yes (Hospitalization)
  Sender: FDA-Public Use
  Company Number: JP-PFIZER INC-2012137097

PATIENT
  Age: 88 Year
  Sex: Female
  Weight: 46 kg

DRUGS (8)
  1. ZOSYN [Suspect]
     Indication: URINARY TRACT INFECTION
     Dosage: 4.5 g, 2x/day
     Route: 041
     Dates: start: 20120403, end: 20120404
  2. ZOSYN [Suspect]
     Indication: SEPSIS
     Dosage: 4.5 g, 3x/day
     Route: 041
     Dates: start: 20120405, end: 20120417
  3. GASTER [Concomitant]
     Indication: HAEMORRHAGE PROPHYLAXIS
     Dosage: 10 mg, 1x/day
     Route: 041
     Dates: start: 20120404, end: 20120416
  4. DIART [Concomitant]
     Indication: CARDIAC FAILURE CHRONIC
     Dosage: 30 mg, 1x/day
     Route: 048
     Dates: start: 20120413
  5. EQUA [Concomitant]
     Indication: TYPE 2 DIABETES MELLITUS
     Dosage: 100 mg, 1x/day
     Route: 048
     Dates: start: 20120413
  6. LACB R [Concomitant]
     Indication: PROPHYLAXIS AGAINST DIARRHOEA
     Dosage: 3 g, 1x/day
     Route: 048
     Dates: start: 20120412, end: 20120418
  7. FUROSEMIDE [Concomitant]
     Indication: CARDIAC FAILURE CHRONIC
     Dosage: 10 mg, 1x/day
     Route: 041
     Dates: start: 20120407, end: 20120413
  8. SILVINOL [Concomitant]
     Indication: ANGINA PECTORIS
     Dosage: 15 mg, 1x/day
     Route: 048
     Dates: start: 20120413

REACTIONS (3)
  - Hepatic function abnormal [Recovering/Resolving]
  - Aspartate aminotransferase increased [None]
  - Alanine aminotransferase increased [None]
